FAERS Safety Report 8596724-5 (Version None)
Quarter: 2012Q3

REPORT INFORMATION
  Report Type: 
  Country: None (occurrence: None)
  Receive Date: 20120815
  Receipt Date: 20120806
  Transmission Date: 20120928
  Serious: Yes (Death)
  Sender: FDA-Public Use
  Company Number: US-SANTEN INC.-INC-12-000225

PATIENT
  Sex: Male

DRUGS (1)
  1. BETIMOL [Suspect]

REACTIONS (1)
  - DEATH [None]
